FAERS Safety Report 13615638 (Version 1)
Quarter: 2017Q2

REPORT INFORMATION
  Report Type: Spontaneous
  Country: US (occurrence: US)
  Receive Date: 20170605
  Receipt Date: 20170605
  Transmission Date: 20170830
  Serious: Yes (Hospitalization)
  Sender: FDA-Public Use
  Company Number: None

PATIENT
  Age: 61 Year
  Sex: Male
  Weight: 112.49 kg

DRUGS (1)
  1. FLUPHENAZINE [Suspect]
     Active Substance: FLUPHENAZINE
     Indication: BIPOLAR I DISORDER
     Route: 048
     Dates: start: 20151228, end: 20160111

REACTIONS (3)
  - Extrapyramidal disorder [None]
  - Tremor [None]
  - Nervousness [None]

NARRATIVE: CASE EVENT DATE: 20151228
